FAERS Safety Report 4273742-9 (Version None)
Quarter: 2004Q1

REPORT INFORMATION
  Report Type: 
  Country: None (occurrence: None)
  Receive Date: 20040119
  Receipt Date: 20031226
  Transmission Date: 20041129
  Serious: Yes (Disabling)
  Sender: FDA-Public Use
  Company Number: PHFR2003GB04973

PATIENT
  Age: 58 Year
  Sex: Female
  Weight: 64 kg

DRUGS (1)
  1. CLOZARIL [Suspect]
     Indication: MEDICATION ERROR
     Dosage: 300 MG OVERDOSE
     Dates: start: 20031226, end: 20031227

REACTIONS (3)
  - MEDICATION ERROR [None]
  - SOMNOLENCE [None]
  - URINARY INCONTINENCE [None]
